FAERS Safety Report 21151602 (Version 1)
Quarter: 2022Q3

REPORT INFORMATION
  Report Type: Spontaneous
  Country: GB (occurrence: GB)
  Receive Date: 20220730
  Receipt Date: 20220730
  Transmission Date: 20221027
  Serious: Yes (Other)
  Sender: FDA-Public Use
  Company Number: None

PATIENT
  Age: 64 Year
  Sex: Male
  Weight: 81 kg

DRUGS (4)
  1. IMATINIB [Suspect]
     Active Substance: IMATINIB
     Indication: Chronic myeloid leukaemia
     Dosage: UNK
     Route: 065
     Dates: start: 20200608, end: 20201108
  2. IMATINIB [Suspect]
     Active Substance: IMATINIB
     Dosage: 400 MG, QD
     Route: 048
     Dates: start: 20200429, end: 20200910
  3. DASATINIB [Suspect]
     Active Substance: DASATINIB
     Indication: Chronic myeloid leukaemia
     Dosage: 140 MG, QD
     Route: 048
     Dates: start: 20200910, end: 20210225
  4. ALLOPURINOL [Concomitant]
     Active Substance: ALLOPURINOL
     Indication: Prophylaxis
     Dosage: 300 MG, QD
     Route: 048
     Dates: start: 20200429, end: 20200529

REACTIONS (3)
  - Chronic myeloid leukaemia [Unknown]
  - Malignant neoplasm progression [Unknown]
  - Drug resistance [Recovering/Resolving]

NARRATIVE: CASE EVENT DATE: 20200910
